FAERS Safety Report 14772021 (Version 1)
Quarter: 2018Q2

REPORT INFORMATION
  Report Type: Report from Study
  Country: CN (occurrence: CN)
  Receive Date: 20180417
  Receipt Date: 20180417
  Transmission Date: 20180711
  Serious: Yes (Other)
  Sender: FDA-Public Use
  Company Number: CN-GLAXOSMITHKLINE-CN2018GSK063154

PATIENT

DRUGS (3)
  1. ZIDOVUDINE. [Suspect]
     Active Substance: ZIDOVUDINE
     Indication: HIV INFECTION
     Dosage: 300 MG, BID
  2. EFAVIRENZ. [Suspect]
     Active Substance: EFAVIRENZ
     Indication: HIV INFECTION
     Dosage: 600 MG, QD
  3. LAMIVUDINE. [Suspect]
     Active Substance: LAMIVUDINE
     Indication: HIV INFECTION
     Dosage: 300 MG, QD

REACTIONS (3)
  - Drug resistance [Unknown]
  - Pathogen resistance [Unknown]
  - Viral mutation identified [Unknown]
